FAERS Safety Report 6045163-X (Version None)
Quarter: 2009Q1

REPORT INFORMATION
  Report Type: 
  Country: None (occurrence: None)
  Receive Date: 20090116
  Receipt Date: 20090116
  Transmission Date: 20090719
  Serious: Yes (Hospitalization)
  Sender: FDA-Public Use
  Company Number: None

PATIENT
  Age: 39 Year
  Sex: Male
  Weight: 61.2356 kg

DRUGS (1)
  1. REQUIP [Suspect]
     Dosage: 4 MG 3 TIMES A DAY OTIC
     Route: 001
     Dates: start: 19990101, end: 20080101

REACTIONS (4)
  - IMPULSIVE BEHAVIOUR [None]
  - PARTNER STRESS [None]
  - PATHOLOGICAL GAMBLING [None]
  - THINKING ABNORMAL [None]
